FAERS Safety Report 5997061-5 (Version None)
Quarter: 2008Q4

REPORT INFORMATION
  Report Type: 
  Country: None (occurrence: None)
  Receive Date: 20081212
  Receipt Date: 20081107
  Transmission Date: 20090506
  Serious: No
  Sender: FDA-Public Use
  Company Number: US-ABBOTT-08P-163-0485239-00

PATIENT
  Sex: Male
  Weight: 95.34 kg

DRUGS (3)
  1. HUMIRA [Suspect]
     Indication: ARTHRITIS
     Route: 058
     Dates: start: 20080201
  2. METHOTREXATE [Concomitant]
     Indication: ARTHRITIS
     Route: 048
  3. FOLIC ACID [Concomitant]
     Indication: ARTHRITIS
     Route: 048

REACTIONS (3)
  - BACK PAIN [None]
  - INCORRECT DOSE ADMINISTERED [None]
  - SINUSITIS [None]
